FAERS Safety Report 9000648 (Version 2)
Quarter: 2013Q1

REPORT INFORMATION
  Report Type: Spontaneous
  Country: US (occurrence: US)
  Receive Date: 20130107
  Receipt Date: 20130220
  Transmission Date: 20140127
  Serious: No
  Sender: FDA-Public Use
  Company Number: US-PFIZER INC-2013005282

PATIENT
  Age: 50 Year
  Sex: Male
  Weight: 79.37 kg

DRUGS (3)
  1. GABAPENTIN [Suspect]
     Indication: MULTIPLE SCLEROSIS
     Dosage: 300 MG, 3X/DAY
     Route: 048
     Dates: start: 20110804, end: 20111206
  2. GABAPENTIN [Suspect]
     Indication: NEURALGIA
  3. GABAPENTIN [Suspect]
     Indication: PAIN

REACTIONS (3)
  - Malaise [Unknown]
  - Drug ineffective [Unknown]
  - Intentional drug misuse [Unknown]
